FAERS Safety Report 9397149 (Version 2)
Quarter: 2013Q3

REPORT INFORMATION
  Report Type: Report from Study
  Country: AU (occurrence: AU)
  Receive Date: 20130712
  Receipt Date: 20130827
  Transmission Date: 20140515
  Serious: Yes (Hospitalization, Other)
  Sender: FDA-Public Use
  Company Number: PHHY2013AU073401

PATIENT
  Age: 61 Year
  Sex: Male

DRUGS (3)
  1. CLOZARIL [Suspect]
     Dosage: 500 MG, DAILY
     Dates: start: 20090518
  2. ANTIBIOTICS [Concomitant]
     Indication: INFECTION
     Dosage: UNK
  3. SODIUM VALPROATE [Concomitant]
     Indication: EPILEPSY
     Dosage: 500 MG, BID
     Route: 048

REACTIONS (6)
  - Bladder cancer [Unknown]
  - Bladder perforation [Recovered/Resolved]
  - Complex partial seizures [Not Recovered/Not Resolved]
  - Renal impairment [Recovered/Resolved]
  - White blood cell count increased [Recovered/Resolved]
  - Malaise [Unknown]
